FAERS Safety Report 5300055-6 (Version None)
Quarter: 2007Q2

REPORT INFORMATION
  Report Type: 
  Country: None (occurrence: None)
  Receive Date: 20070410
  Receipt Date: 20070330
  Transmission Date: 20071010
  Serious: Yes (Life-Threatening, Hospitalization)
  Sender: FDA-Public Use
  Company Number: B0443599A

PATIENT
  Sex: Female
  Weight: 39.9165 kg

DRUGS (2)
  1. PAXIL [Suspect]
     Indication: SOCIAL PHOBIA
     Dosage: 20 MG PER DAY ORAL
     Route: 048
     Dates: start: 20061002, end: 20061003
  2. MOSAPRIDE CITRATE [Concomitant]

REACTIONS (8)
  - CONFUSIONAL STATE [None]
  - DELIRIUM [None]
  - DELUSION [None]
  - DIZZINESS [None]
  - HALLUCINATION, AUDITORY [None]
  - INSOMNIA [None]
  - NAUSEA [None]
  - SUICIDE ATTEMPT [None]
